FAERS Safety Report 5091224-1 (Version None)
Quarter: 2006Q3

REPORT INFORMATION
  Report Type: 
  Country: None (occurrence: None)
  Receive Date: 20060824
  Receipt Date: 20060811
  Transmission Date: 20061208
  Serious: Yes (Other)
  Sender: FDA-Public Use
  Company Number: 2006099347

PATIENT
  Sex: Female

DRUGS (4)
  1. BEXTRA [Suspect]
     Indication: BACK DISORDER
     Dosage: 10 MG (10 MG, 1 IN 1 D)
  2. BEXTRA [Suspect]
     Indication: PAIN
     Dosage: 10 MG (10 MG, 1 IN 1 D)
  3. ASACOL (MESALAZIDE) [Concomitant]
  4. THYROID TAB [Concomitant]

REACTIONS (2)
  - BUTTOCK PAIN [None]
  - EXOSTOSIS [None]
